FAERS Safety Report 18001946 (Version 1)
Quarter: 2020Q3

REPORT INFORMATION
  Report Type: Spontaneous
  Country: CA (occurrence: CA)
  Receive Date: 20200709
  Receipt Date: 20200709
  Transmission Date: 20201103
  Serious: Yes (Life-Threatening, Hospitalization)
  Sender: FDA-Public Use
  Company Number: CA-TEVA-2020-CA-1798156

PATIENT
  Age: 15 Year
  Sex: Male

DRUGS (1)
  1. CISPLATIN INJECTION BP SINGLE DOSE VIALS. 10MG/10ML AND 50MG/50ML.PRES [Suspect]
     Active Substance: CISPLATIN
     Route: 042

REACTIONS (4)
  - Discomfort [Not Recovered/Not Resolved]
  - Dysphonia [Not Recovered/Not Resolved]
  - Cough [Not Recovered/Not Resolved]
  - Flushing [Not Recovered/Not Resolved]
